FAERS Safety Report 18102124 (Version 2)
Quarter: 2020Q3

REPORT INFORMATION
  Report Type: Report from Study
  Country: None (occurrence: IL)
  Receive Date: 20200803
  Receipt Date: 20200819
  Transmission Date: 20201103
  Serious: Yes (Hospitalization, Other)
  Sender: FDA-Public Use
  Company Number: IL-ABBVIE-20K-082-3504809-00

PATIENT
  Age: 62 Year
  Sex: Male

DRUGS (2)
  1. DUODOPA [Suspect]
     Active Substance: CARBIDOPA\LEVODOPA
  2. DUODOPA [Suspect]
     Active Substance: CARBIDOPA\LEVODOPA
     Indication: PARKINSON^S DISEASE
     Dosage: CURRENT: MORNING 15 ML, CONTINUOUS RATE 4.4 ML/HOUR, ED 1.5 ML
     Route: 050
     Dates: start: 20200720

REACTIONS (2)
  - Pyrexia [Unknown]
  - Bacteraemia [Unknown]

NARRATIVE: CASE EVENT DATE: 202007
